FAERS Safety Report 24160815 (Version 2)
Quarter: 2024Q3

REPORT INFORMATION
  Report Type: Report from Study
  Country: CA (occurrence: CA)
  Receive Date: 20240801
  Receipt Date: 20240917
  Transmission Date: 20241016
  Serious: Yes (Hospitalization, Other)
  Sender: ROCHE
  Company Number: CA-ROCHE-2303799

PATIENT
  Age: 25 Year
  Sex: Male

DRUGS (5)
  1. OCREVUS [Suspect]
     Active Substance: OCRELIZUMAB
     Indication: Relapsing-remitting multiple sclerosis
     Dosage: 300 MG AT DAY 0 AND 14, THEN 600 MG EVERY 6 MONTH.
     Route: 042
     Dates: start: 20180223
  2. OCREVUS [Suspect]
     Active Substance: OCRELIZUMAB
     Dosage: 300 MG AT DAY 0 AND 14, THEN 600 MG EVERY 6 MONTH
     Route: 042
  3. OCREVUS [Suspect]
     Active Substance: OCRELIZUMAB
     Route: 065
  4. SERTRALINE [Concomitant]
     Active Substance: SERTRALINE HYDROCHLORIDE
  5. PALIPERIDONE [Concomitant]
     Active Substance: PALIPERIDONE

REACTIONS (32)
  - Abnormal behaviour [Unknown]
  - Infusion related reaction [Recovered/Resolved]
  - Hiccups [Not Recovered/Not Resolved]
  - Anger [Unknown]
  - Weight decreased [Unknown]
  - Poor quality sleep [Not Recovered/Not Resolved]
  - Aggression [Unknown]
  - Pharyngeal disorder [Unknown]
  - Dysphagia [Unknown]
  - Amnesia [Not Recovered/Not Resolved]
  - Dyskinesia [Not Recovered/Not Resolved]
  - Vision blurred [Not Recovered/Not Resolved]
  - Fracture [Not Recovered/Not Resolved]
  - Scratch [Not Recovered/Not Resolved]
  - Fall [Unknown]
  - Pain [Not Recovered/Not Resolved]
  - Visual acuity reduced [Not Recovered/Not Resolved]
  - Back disorder [Not Recovered/Not Resolved]
  - Pain in extremity [Unknown]
  - Somnolence [Unknown]
  - Decreased appetite [Unknown]
  - Decreased activity [Unknown]
  - Tremor [Not Recovered/Not Resolved]
  - Peripheral swelling [Not Recovered/Not Resolved]
  - Contusion [Unknown]
  - Daydreaming [Unknown]
  - Cerebral disorder [Unknown]
  - Blood glucose abnormal [Unknown]
  - Fall [Unknown]
  - Urinary incontinence [Unknown]
  - Anal incontinence [Unknown]
  - Suicide threat [Not Recovered/Not Resolved]

NARRATIVE: CASE EVENT DATE: 20210204
